FAERS Safety Report 25872100 (Version 1)
Quarter: 2025Q4

REPORT INFORMATION
  Report Type: Spontaneous
  Country: CN (occurrence: CN)
  Receive Date: 20251002
  Receipt Date: 20251002
  Transmission Date: 20260117
  Serious: Yes (Other)
  Sender: SANOFI AVENTIS
  Company Number: CN-DialogSolutions-SAAVPROD-PI825890-C1

PATIENT
  Age: 34 Year
  Sex: Male

DRUGS (2)
  1. DUPILUMAB [Suspect]
     Active Substance: DUPILUMAB
     Indication: Subcorneal pustular dermatosis
     Dosage: 300 MG, QOW (7 INJECTION)
     Route: 058
  2. CORTICOSTEROID NOS [Concomitant]
     Active Substance: CORTICOSTEROID NOS
     Indication: Subcorneal pustular dermatosis
     Dosage: UNK

REACTIONS (12)
  - Subcorneal pustular dermatosis [Recovering/Resolving]
  - Condition aggravated [Recovering/Resolving]
  - Pustule [Recovering/Resolving]
  - Skin plaque [Recovering/Resolving]
  - Erythema [Recovering/Resolving]
  - Skin exfoliation [Recovering/Resolving]
  - Parakeratosis [Recovering/Resolving]
  - Scab [Recovering/Resolving]
  - Lymphocytic infiltration [Recovering/Resolving]
  - Corneal abscess [Recovering/Resolving]
  - Skin hyperpigmentation [Recovering/Resolving]
  - Unintentional use for unapproved indication [Recovering/Resolving]
